FAERS Safety Report 26111374 (Version 1)
Quarter: 2025Q4

REPORT INFORMATION
  Report Type: Spontaneous
  Country: EU (occurrence: EU)
  Receive Date: 20251202
  Receipt Date: 20251202
  Transmission Date: 20260118
  Serious: Yes (Other)
  Sender: BIOCON
  Company Number: EU-MIMS-BCONMC-19925

PATIENT

DRUGS (1)
  1. FULPHILA [Suspect]
     Active Substance: PEGFILGRASTIM-JMDB
     Indication: Gastric cancer
     Dosage: UNK
     Route: 065

REACTIONS (6)
  - Gastric cancer recurrent [Unknown]
  - White blood cell count decreased [Unknown]
  - Asthenia [Unknown]
  - Myalgia [Unknown]
  - White blood cell count increased [Unknown]
  - Bone pain [Unknown]
